FAERS Safety Report 18058915 (Version 1)
Quarter: 2020Q3

REPORT INFORMATION
  Report Type: Spontaneous
  Country: JP (occurrence: JP)
  Receive Date: 20200723
  Receipt Date: 20200723
  Transmission Date: 20201103
  Serious: Yes (Other)
  Sender: FDA-Public Use
  Company Number: JP-ASTRAZENECA-2020SE90886

PATIENT
  Sex: Female

DRUGS (1)
  1. PULMICORT TURBUHALER [Suspect]
     Active Substance: BUDESONIDE
     Dosage: DOSE UNKNOWN
     Route: 055

REACTIONS (8)
  - Neoplasm malignant [Unknown]
  - Nausea [Unknown]
  - Anaemia [Unknown]
  - Biliary dilatation [Unknown]
  - Lymphadenopathy [Unknown]
  - Abdominal pain [Unknown]
  - Latent tuberculosis [Unknown]
  - Chest discomfort [Unknown]
